FAERS Safety Report 10171111 (Version 1)
Quarter: 2014Q2

REPORT INFORMATION
  Report Type: Spontaneous
  Country: GB (occurrence: GB)
  Receive Date: 20140514
  Receipt Date: 20140514
  Transmission Date: 20141212
  Serious: Yes (Hospitalization, Other)
  Sender: FDA-Public Use
  Company Number: GB-JNJFOC-20140505266

PATIENT
  Sex: 0

DRUGS (2)
  1. CO-CODAMOL [Suspect]
     Indication: STRESS
     Route: 064
  2. CO-CODAMOL [Suspect]
     Indication: BACK PAIN
     Route: 064

REACTIONS (5)
  - Foetal exposure during pregnancy [Unknown]
  - Foetal heart rate deceleration abnormality [Recovered/Resolved]
  - Overdose [Recovered/Resolved]
  - Blood bilirubin increased [Recovered/Resolved]
  - Alanine aminotransferase increased [Recovered/Resolved]
